FAERS Safety Report 8280597 (Version 4)
Quarter: 2012Q4

REPORT INFORMATION
  Report Type: Spontaneous
  Country: FR (occurrence: None)
  Receive Date: 20111202
  Receipt Date: 20121101
  Transmission Date: 20130627
  Serious: Yes (Death, Life-Threatening, Hospitalization)
  Sender: FDA-Public Use
  Company Number: US-2011-10851

PATIENT
  Age: 33 Year
  Sex: Female
  Weight: 56 kg

DRUGS (3)
  1. BUSULFEX [Suspect]
     Indication: MYELOID LEUKAEMIA
     Dosage: 3.2 MG/KG, INTRAVENOUS
     Route: 042
     Dates: start: 20110329, end: 20110401
  2. BUSULFEX [Suspect]
     Indication: MYELOID LEUKAEMIA
     Route: 042
     Dates: end: 20110401
  3. CYCLOPHOSPHAMIDE [Concomitant]
     Indication: MYELOID LEUKAEMIA
     Dosage: 60 MG/KG, QD, INTRAVENOUS
     Route: 042
     Dates: start: 20110403, end: 20110404

REACTIONS (5)
  - Renal failure [None]
  - Chronic graft versus host disease [None]
  - Lung infection [None]
  - Aspergillosis [None]
  - Cytomegalovirus infection [None]
